FAERS Safety Report 8079599-2 (Version None)
Quarter: 2012Q1

REPORT INFORMATION
  Report Type: 
  Country: None (occurrence: None)
  Receive Date: 20120128
  Receipt Date: 20110830
  Transmission Date: 20120608
  Serious: Yes (Hospitalization, Other)
  Sender: FDA-Public Use
  Company Number: US-ABBOTT-11P-163-0850378-00

PATIENT
  Sex: Female

DRUGS (10)
  1. SYNTHROID [Concomitant]
     Indication: PRODUCT USED FOR UNKNOWN INDICATION
  2. REQUIP [Concomitant]
     Indication: RESTLESS LEGS SYNDROME
  3. ARTHRITIS MEDICATION [Concomitant]
     Indication: PRODUCT USED FOR UNKNOWN INDICATION
  4. EFFEXOR [Concomitant]
     Indication: DEPRESSION
  5. HUMIRA [Suspect]
     Indication: RHEUMATOID ARTHRITIS
     Dates: start: 20110501, end: 20110601
  6. TRAMADOL HCL [Concomitant]
     Indication: PRODUCT USED FOR UNKNOWN INDICATION
  7. VITAMIN D [Concomitant]
     Indication: PRODUCT USED FOR UNKNOWN INDICATION
  8. FOLIC ACID [Concomitant]
     Indication: PRODUCT USED FOR UNKNOWN INDICATION
  9. CALCIUM [Concomitant]
     Indication: PRODUCT USED FOR UNKNOWN INDICATION
  10. METHOTREXATE [Concomitant]
     Indication: RHEUMATOID ARTHRITIS

REACTIONS (2)
  - DYSPNOEA [None]
  - GENERALISED OEDEMA [None]
